FAERS Safety Report 23891752 (Version 1)
Quarter: 2024Q2

REPORT INFORMATION
  Report Type: Spontaneous
  Country: US (occurrence: US)
  Receive Date: 20240524
  Receipt Date: 20240524
  Transmission Date: 20240715
  Serious: No
  Sender: FDA-Public Use
  Company Number: US-ABBVIE-5772501

PATIENT
  Age: 62 Year
  Sex: Female
  Weight: 61.2 kg

DRUGS (4)
  1. BOTOX COSMETIC [Suspect]
     Active Substance: ONABOTULINUMTOXINA
     Indication: Skin wrinkling
     Dosage: TIME INTERVAL: AS NECESSARY: FREQUENCY TEXT: ONCE EVERY FOUR TO FIVE MONTHS?START DATE TEXT: MORE...
     Route: 030
     Dates: start: 202404, end: 202404
  2. BOTOX COSMETIC [Suspect]
     Active Substance: ONABOTULINUMTOXINA
     Indication: Skin wrinkling
     Dosage: TIME INTERVAL: AS NECESSARY: FREQUENCY TEXT: ONCE EVERY FOUR TO FIVE MONTHS?START DATE TEXT: MORE...
     Route: 030
     Dates: start: 202404, end: 202404
  3. BOTOX COSMETIC [Suspect]
     Active Substance: ONABOTULINUMTOXINA
     Indication: Skin wrinkling
     Dosage: TIME INTERVAL: AS NECESSARY: FREQUENCY TEXT: ONCE EVERY FOUR TO FIVE MONTHS?START DATE TEXT: MORE...
     Route: 030
     Dates: start: 202404, end: 202404
  4. BOTOX COSMETIC [Suspect]
     Active Substance: ONABOTULINUMTOXINA
     Indication: Skin wrinkling
     Dosage: TIME INTERVAL: AS NECESSARY: FREQUENCY TEXT: ONCE EVERY FOUR TO FIVE MONTHS?START DATE TEXT: MORE...
     Route: 030
     Dates: start: 202404, end: 202404

REACTIONS (2)
  - Drug ineffective [Not Recovered/Not Resolved]
  - Product quality issue [Not Recovered/Not Resolved]

NARRATIVE: CASE EVENT DATE: 20240401
